FAERS Safety Report 15115085 (Version 1)
Quarter: 2018Q3

REPORT INFORMATION
  Report Type: Report from Study
  Country: US (occurrence: US)
  Receive Date: 20180706
  Receipt Date: 20180706
  Transmission Date: 20181010
  Serious: Yes (Hospitalization, Other)
  Sender: FDA-Public Use
  Company Number: US-PFIZER INC-2018079518

PATIENT
  Age: 60 Year
  Sex: Male

DRUGS (1)
  1. SUTENT [Suspect]
     Active Substance: SUNITINIB MALATE
     Indication: RENAL CELL CARCINOMA
     Dosage: 50 MG, DAILY
     Route: 048
     Dates: start: 20180125, end: 20180426

REACTIONS (10)
  - Urosepsis [Unknown]
  - Hyperglycaemia [Unknown]
  - Glossodynia [Unknown]
  - Stomatitis [Unknown]
  - Hyperaesthesia [Unknown]
  - Asthenia [Unknown]
  - Retching [Unknown]
  - Nausea [Unknown]
  - Sepsis [Unknown]
  - Vomiting [Unknown]

NARRATIVE: CASE EVENT DATE: 2018
